FAERS Safety Report 25973198 (Version 1)
Quarter: 2025Q4

REPORT INFORMATION
  Report Type: Spontaneous
  Country: US (occurrence: US)
  Receive Date: 20251029
  Receipt Date: 20251029
  Transmission Date: 20260118
  Serious: No
  Sender: ROCHE
  Company Number: US-ROCHE-10000413760

PATIENT
  Sex: Male

DRUGS (1)
  1. ERIVEDGE [Suspect]
     Active Substance: VISMODEGIB
     Indication: Malignant neoplasm of unknown primary site
     Dosage: STRENGTH: 150 MG
     Route: 048
     Dates: start: 202507

REACTIONS (5)
  - Hypoaesthesia [Unknown]
  - Limb discomfort [Unknown]
  - Fatigue [Unknown]
  - Neuropathy peripheral [Unknown]
  - Malaise [Unknown]
